FAERS Safety Report 20291395 (Version 3)
Quarter: 2022Q1

REPORT INFORMATION
  Report Type: Report from Study
  Country: IL (occurrence: None)
  Receive Date: 20220104
  Receipt Date: 20220110
  Transmission Date: 20220424
  Serious: Yes (Hospitalization)
  Sender: FDA-Public Use
  Company Number: IL-ROCHE-2988848

PATIENT
  Age: 47 Year
  Sex: Female
  Weight: 81 kg

DRUGS (39)
  1. GLOFITAMAB [Suspect]
     Active Substance: GLOFITAMAB
     Indication: Non-Hodgkin^s lymphoma
     Dosage: ON 22/DEC/2021 10:30 AM, RECEIVED MOST RECENT DOSE 10 MG PRIOR TO AE AND SAE?ON 22/DEC/2021 2:30 PM,
     Route: 042
     Dates: start: 20211215
  2. OBINUTUZUMAB [Suspect]
     Active Substance: OBINUTUZUMAB
     Indication: Non-Hodgkin^s lymphoma
     Dosage: ON 08/DEC/2021 11:45 AM, RECEIVED MOST RECENT DOSE 290 ML PRIOR TO AE AND SAE?ON 08/DEC/2021 4:35 PM
     Route: 042
     Dates: start: 20211208
  3. POLATUZUMAB VEDOTIN [Suspect]
     Active Substance: POLATUZUMAB VEDOTIN
     Indication: Non-Hodgkin^s lymphoma
     Dosage: ON 09/DEC/2021 11:10 AM, RECEIVED MOST RECENT DOSE 158 MG PRIOR TO AE AND SAE?ON 09/DEC/2021 12:40 P
     Route: 042
     Dates: start: 20211209
  4. PIPERACILLIN SODIUM\TAZOBACTAM SODIUM [Concomitant]
     Active Substance: PIPERACILLIN SODIUM\TAZOBACTAM SODIUM
     Dates: start: 20211216, end: 20211219
  5. ACETAMINOPHEN [Concomitant]
     Active Substance: ACETAMINOPHEN
     Dates: start: 20211216, end: 20211216
  6. CODEINE PHOSPHATE [Concomitant]
     Active Substance: CODEINE PHOSPHATE
     Indication: Cough
     Dates: start: 20211215, end: 20211215
  7. MORPHINE HYDROCHLORIDE [Concomitant]
     Active Substance: MORPHINE HYDROCHLORIDE
     Indication: Cough
     Dates: start: 20211216, end: 20211216
  8. DEXAMETHASONE [Concomitant]
     Active Substance: DEXAMETHASONE
     Indication: Cough
     Dates: start: 20211218, end: 20211219
  9. STOPIT [Concomitant]
     Indication: Diarrhoea
     Dates: start: 20211218, end: 20211218
  10. SODIUM CHLORIDE [Concomitant]
     Active Substance: SODIUM CHLORIDE
     Indication: Diarrhoea
     Dates: start: 20211216, end: 20211219
  11. SODIUM CHLORIDE [Concomitant]
     Active Substance: SODIUM CHLORIDE
     Dates: start: 20211223, end: 20211225
  12. SODIUM CHLORIDE [Concomitant]
     Active Substance: SODIUM CHLORIDE
     Dates: start: 20211217, end: 20211218
  13. SODIUM CHLORIDE [Concomitant]
     Active Substance: SODIUM CHLORIDE
     Dates: start: 20211216, end: 20211219
  14. METOCLOPRAMIDE HYDROCHLORIDE [Concomitant]
     Active Substance: METOCLOPRAMIDE HYDROCHLORIDE
     Indication: Nausea
     Dates: start: 20211216, end: 20211219
  15. CONTROLOC [Concomitant]
     Active Substance: PANTOPRAZOLE SODIUM
     Indication: Nausea
     Dates: start: 20211217, end: 20211219
  16. MAGNESIUM SULFATE [Concomitant]
     Active Substance: MAGNESIUM SULFATE
     Indication: Hypomagnesaemia
     Dates: start: 20211218, end: 20211218
  17. DEXAMETHASONE [Concomitant]
     Active Substance: DEXAMETHASONE
     Route: 042
     Dates: start: 20211209, end: 20211209
  18. DEXAMETHASONE [Concomitant]
     Active Substance: DEXAMETHASONE
     Route: 042
     Dates: start: 20211215, end: 20211215
  19. DEXAMETHASONE [Concomitant]
     Active Substance: DEXAMETHASONE
     Route: 042
     Dates: start: 20211208, end: 20211208
  20. DEXAMETHASONE [Concomitant]
     Active Substance: DEXAMETHASONE
     Route: 042
     Dates: start: 20211222, end: 20211222
  21. PROMETHAZINE [Concomitant]
     Active Substance: PROMETHAZINE HYDROCHLORIDE
     Route: 048
     Dates: start: 20211209, end: 20211209
  22. PROMETHAZINE [Concomitant]
     Active Substance: PROMETHAZINE HYDROCHLORIDE
     Route: 048
     Dates: start: 20211208, end: 20211208
  23. PROMETHAZINE [Concomitant]
     Active Substance: PROMETHAZINE HYDROCHLORIDE
     Route: 048
     Dates: start: 20211215, end: 20211215
  24. PROMETHAZINE [Concomitant]
     Active Substance: PROMETHAZINE HYDROCHLORIDE
     Route: 048
     Dates: start: 20211222, end: 20211222
  25. XARELTO [Concomitant]
     Active Substance: RIVAROXABAN
     Dates: start: 202007, end: 20211208
  26. ZOVIRAX [Concomitant]
     Active Substance: ACYCLOVIR
     Dates: start: 202104
  27. CIPRALEX [Concomitant]
     Active Substance: ESCITALOPRAM OXALATE
     Dates: start: 2019
  28. ZYLLERGY [Concomitant]
     Dates: start: 202009
  29. PREDNISONE [Concomitant]
     Active Substance: PREDNISONE
     Dates: start: 20211203, end: 20211207
  30. ALLOPURINOL [Concomitant]
     Active Substance: ALLOPURINOL
     Dates: start: 20211203
  31. OMEPRAZOLE [Concomitant]
     Active Substance: OMEPRAZOLE
     Dates: start: 20211203, end: 20211207
  32. DISEPTYL FORTE [Concomitant]
     Dates: start: 202104, end: 20211207
  33. DISEPTYL FORTE [Concomitant]
     Dates: start: 20211208
  34. SULFAMETHOXAZOLE\TRIMETHOPRIM [Concomitant]
     Active Substance: SULFAMETHOXAZOLE\TRIMETHOPRIM
     Dates: start: 20211216, end: 20211216
  35. ZYLOL [Concomitant]
     Indication: Blood creatinine increased
     Dates: start: 20211218, end: 20211219
  36. ZYLOL [Concomitant]
     Dates: start: 20211215, end: 20211215
  37. POTASSIUM CHLORIDE [Concomitant]
     Active Substance: POTASSIUM CHLORIDE
     Dates: end: 20211225
  38. AEROVENT (ISRAEL) [Concomitant]
     Indication: Cough
     Dates: start: 20211218, end: 20211218
  39. FUSID (ISRAEL) [Concomitant]
     Indication: Cough
     Dates: start: 20211218, end: 20211218

REACTIONS (1)
  - Cytokine release syndrome [Recovered/Resolved]

NARRATIVE: CASE EVENT DATE: 20211216
